FAERS Safety Report 7282036-9 (Version None)
Quarter: 2011Q1

REPORT INFORMATION
  Report Type: 
  Country: None (occurrence: None)
  Receive Date: 20110208
  Receipt Date: 20110120
  Transmission Date: 20110831
  Serious: Yes (Hospitalization)
  Sender: FDA-Public Use
  Company Number: GXKR2010IT10242

PATIENT
  Age: 89 Year
  Sex: Female

DRUGS (1)
  1. TICLOPIDINE HCL [Suspect]
     Indication: PROPHYLAXIS
     Dosage: 2 POSOLOGIC UNITS
     Route: 048
     Dates: start: 20100420, end: 20100616

REACTIONS (1)
  - PRESYNCOPE [None]
